FAERS Safety Report 5010097-6 (Version None)
Quarter: 2006Q2

REPORT INFORMATION
  Report Type: 
  Country: None (occurrence: None)
  Receive Date: 20060523
  Receipt Date: 20060510
  Transmission Date: 20061013
  Serious: Yes (Other)
  Sender: FDA-Public Use
  Company Number: GB-2006-011069

PATIENT
  Age: 70 Year
  Sex: Male

DRUGS (2)
  1. FLUDARABINE PHOSPHATE [Suspect]
     Indication: CHRONIC LYMPHOCYTIC LEUKAEMIA
     Dosage: 75 MG/M2, 6 CYCLES
     Dates: start: 20020701, end: 20030301
  2. CYCLOPHOSPHAMIDE [Suspect]
     Indication: CHRONIC LYMPHOCYTIC LEUKAEMIA
     Dosage: 750 MG/M2, 6 CYCLES
     Dates: start: 20020701, end: 20030301

REACTIONS (7)
  - CERVICAL MYELOPATHY [None]
  - GAIT DISTURBANCE [None]
  - HYPOAESTHESIA [None]
  - LHERMITTE'S SIGN [None]
  - LOSS OF PROPRIOCEPTION [None]
  - PARAESTHESIA [None]
  - SENSORY LOSS [None]
